FAERS Safety Report 6368644-8 (Version None)
Quarter: 2009Q3

REPORT INFORMATION
  Report Type: 
  Country: None (occurrence: None)
  Receive Date: 20090917
  Receipt Date: 20090917
  Transmission Date: 20100115
  Serious: Yes (Hospitalization)
  Sender: FDA-Public Use
  Company Number: None

PATIENT
  Age: 17 Year
  Sex: Male

DRUGS (2)
  1. VANCOMYCIN [Suspect]
     Indication: CELLULITIS
     Dosage: 1500 MG Q12H IV DRIP
     Route: 041
     Dates: start: 20090709, end: 20090717
  2. VANCOMYCIN [Suspect]
     Indication: PNEUMONIA
     Dosage: 1500 MG Q12H IV DRIP
     Route: 041
     Dates: start: 20090709, end: 20090717

REACTIONS (4)
  - DRUG ERUPTION [None]
  - PYREXIA [None]
  - RASH PAPULAR [None]
  - URINARY TRACT INFECTION [None]
